FAERS Safety Report 5827878-9 (Version None)
Quarter: 2008Q3

REPORT INFORMATION
  Report Type: 
  Country: None (occurrence: None)
  Receive Date: 20080730
  Receipt Date: 20080721
  Transmission Date: 20090109
  Serious: Yes (Other)
  Sender: FDA-Public Use
  Company Number: TW-PFIZER INC-2008049468

PATIENT
  Age: 65 Year
  Sex: Female
  Weight: 67 kg

DRUGS (2)
  1. SUTENT [Suspect]
     Indication: HEPATIC NEOPLASM MALIGNANT
     Route: 048
     Dates: start: 20080610, end: 20080620
  2. ALL OTHER THERAPEUTIC PRODUCTS [Concomitant]

REACTIONS (7)
  - BLOOD ALBUMIN DECREASED [None]
  - ENCEPHALOPATHY [None]
  - HYPERTENSION [None]
  - HYPOGLYCAEMIA [None]
  - JAUNDICE [None]
  - MUCOSAL INFLAMMATION [None]
  - THROMBOCYTOPENIA [None]
